FAERS Safety Report 4635330-1 (Version None)
Quarter: 2005Q2

REPORT INFORMATION
  Report Type: 
  Country: None (occurrence: None)
  Receive Date: 20050411
  Receipt Date: 20050401
  Transmission Date: 20051028
  Serious: Yes (Disabling, Other)
  Sender: FDA-Public Use
  Company Number: FRWYE489909MAR05

PATIENT
  Age: 31 Year
  Sex: Female

DRUGS (4)
  1. LEVONORGESTREL [Suspect]
     Indication: CONTRACEPTION
     Dosage: 1 TABLET 1X PER 1 DAY; ORAL
     Route: 048
     Dates: start: 20040901
  2. PREVISCAN (FLUINDIONE) [Concomitant]
  3. LEXOMIL (BROMAZEPAM) [Suspect]
  4. MEPRONIZINE (ACEPROMETAZINE/MEPROBAMATE) [Concomitant]

REACTIONS (3)
  - ANXIETY [None]
  - CHEST PAIN [None]
  - DYSPNOEA EXERTIONAL [None]
